FAERS Safety Report 7124825-7 (Version None)
Quarter: 2010Q4

REPORT INFORMATION
  Report Type: 
  Country: None (occurrence: None)
  Receive Date: 20101129
  Receipt Date: 20101124
  Transmission Date: 20110411
  Serious: Yes (Disabling, Other)
  Sender: FDA-Public Use
  Company Number: AT-PFIZER INC-2010020508

PATIENT
  Age: 51 Year
  Sex: Female
  Weight: 54.5 kg

DRUGS (1)
  1. SAYANA [Suspect]
     Indication: CONTRACEPTION
     Dosage: FIRST INJECTION
     Route: 058
     Dates: start: 20090416, end: 20090702

REACTIONS (2)
  - INJECTION SITE NECROSIS [None]
  - INJECTION SITE REACTION [None]
